FAERS Safety Report 4939467-9 (Version None)
Quarter: 2006Q1

REPORT INFORMATION
  Report Type: 
  Country: None (occurrence: None)
  Receive Date: 20060306
  Receipt Date: 20060221
  Transmission Date: 20060701
  Serious: Yes (Other)
  Sender: FDA-Public Use
  Company Number: HQWYE010027FEB06

PATIENT
  Sex: Male

DRUGS (8)
  1. RAPAMUNE [Suspect]
     Indication: PROPHYLAXIS AGAINST TRANSPLANT REJECTION
  2. TACROLIMUS (TACROLIMUS) [Concomitant]
  3. TACROLIMUS (TACROLIMUS) [Concomitant]
  4. PREDNISONE TAB [Concomitant]
  5. PREDNISONE TAB [Concomitant]
  6. HEPARIN [Concomitant]
  7. RANITIDINE [Concomitant]
  8. AMLODIPINE [Concomitant]

REACTIONS (6)
  - ADENOVIRUS INFECTION [None]
  - ANASTOMOTIC ULCER [None]
  - COMPLICATIONS OF TRANSPLANT SURGERY [None]
  - DRUG INEFFECTIVE [None]
  - HAEMORRHAGE INTRACRANIAL [None]
  - RECTAL HAEMORRHAGE [None]
